FAERS Safety Report 23870506 (Version 1)
Quarter: 2024Q2

REPORT INFORMATION
  Report Type: Report from Study
  Country: CA (occurrence: CA)
  Receive Date: 20240518
  Receipt Date: 20240518
  Transmission Date: 20240716
  Serious: Yes (Death, Other)
  Sender: FDA-Public Use
  Company Number: CA-ABBVIE-5764084

PATIENT
  Age: 59 Year
  Sex: Male

DRUGS (2)
  1. SKYRIZI [Suspect]
     Active Substance: RISANKIZUMAB-RZAA
     Indication: Crohn^s disease
     Route: 058
     Dates: start: 20230217
  2. SKYRIZI [Suspect]
     Active Substance: RISANKIZUMAB-RZAA
     Indication: Psoriasis

REACTIONS (11)
  - Death [Fatal]
  - Haemorrhage [Unknown]
  - Cholangiocarcinoma [Unknown]
  - General physical health deterioration [Unknown]
  - Flatulence [Unknown]
  - Hepatic mass [Unknown]
  - Retroperitoneal effusion [Unknown]
  - Abdominal sepsis [Not Recovered/Not Resolved]
  - Jaundice cholestatic [Unknown]
  - Peritoneal perforation [Unknown]
  - Cholangioadenoma [Unknown]

NARRATIVE: CASE EVENT DATE: 20240101
